FAERS Safety Report 4414483-4 (Version None)
Quarter: 2004Q3

REPORT INFORMATION
  Report Type: 
  Country: None (occurrence: None)
  Receive Date: 20040702
  Receipt Date: 20030923
  Transmission Date: 20050211
  Serious: Yes (Other)
  Sender: FDA-Public Use
  Company Number: 347794

PATIENT
  Age: 32 Year
  Sex: Female

DRUGS (3)
  1. KLONOPIN [Suspect]
     Dates: start: 20010615
  2. ORAL CONTRACEPTIVE PILL (ORAL CONTRACEPTIVE NOS) [Concomitant]
  3. ATIVAN [Concomitant]

REACTIONS (1)
  - DRUG WITHDRAWAL SYNDROME [None]
